FAERS Safety Report 5164285-9 (Version None)
Quarter: 2006Q4

REPORT INFORMATION
  Report Type: 
  Country: None (occurrence: None)
  Receive Date: 20061129
  Receipt Date: 20061129
  Transmission Date: 20070319
  Serious: Yes (Death, Life-Threatening)
  Sender: FDA-Public Use
  Company Number: None

PATIENT
  Age: 68 Year
  Sex: Female
  Weight: 76 kg

DRUGS (17)
  1. ENOXAPARIN SODIUM [Suspect]
     Indication: PULMONARY EMBOLISM
     Dosage: 80MG Q12H SQ
     Route: 058
     Dates: start: 20060606, end: 20060610
  2. WARFARIN SODIUM [Suspect]
     Indication: PULMONARY EMBOLISM
     Dosage: VARIABLE BASED ON INR DAILY PO
     Route: 048
     Dates: start: 20060606, end: 20060610
  3. WARFARIN SODIUM [Concomitant]
  4. ENOXAPARIN SODIUM [Concomitant]
  5. CEFTRIAXONE [Concomitant]
  6. AZITHROMYCIN [Concomitant]
  7. RANITIDINE [Concomitant]
  8. AMILORIDE HYDROCHLORIDE [Concomitant]
  9. LISINOPRIL [Concomitant]
  10. FLUTICASONE/SALMETEROL [Concomitant]
  11. GUAIFENESIN [Concomitant]
  12. NICOTINE [Concomitant]
  13. PRESNISONE [Concomitant]
  14. IPROTROPIUM [Concomitant]
  15. DILTIZEM [Concomitant]
  16. SA [Concomitant]
  17. FEXOFENADINE [Concomitant]

REACTIONS (8)
  - ABDOMINAL PAIN [None]
  - CHRONIC OBSTRUCTIVE PULMONARY DISEASE [None]
  - GENERAL PHYSICAL HEALTH DETERIORATION [None]
  - HYPOTENSION [None]
  - INTERNATIONAL NORMALISED RATIO INCREASED [None]
  - PULMONARY EMBOLISM [None]
  - RETROPERITONEAL HAEMORRHAGE [None]
  - THERAPY NON-RESPONDER [None]
